FAERS Safety Report 22874151 (Version 5)
Quarter: 2024Q3

REPORT INFORMATION
  Report Type: Spontaneous
  Country: US (occurrence: US)
  Receive Date: 20230828
  Receipt Date: 20240710
  Transmission Date: 20241017
  Serious: Yes (Disabling, Other)
  Sender: TEVA
  Company Number: US-TEVA-2023-US-2921717

PATIENT
  Age: 48 Year
  Sex: Female

DRUGS (22)
  1. DOCETAXEL [Suspect]
     Active Substance: DOCETAXEL\DOCETAXEL ANHYDROUS
     Indication: Triple negative breast cancer
     Dosage: DOSAGE TEXT: NUMBER OF CYCLE - 10, 20MG/ML 1ML
     Route: 065
     Dates: start: 20140522, end: 20141002
  2. CYTOXAN [Suspect]
     Active Substance: CYCLOPHOSPHAMIDE
     Indication: Triple negative breast cancer
     Route: 065
     Dates: start: 20140522, end: 20141002
  3. BACITRACIN [Concomitant]
     Active Substance: BACITRACIN
     Indication: Product used for unknown indication
     Dates: start: 1999, end: 2016
  4. TOBRADEX [Concomitant]
     Active Substance: DEXAMETHASONE\TOBRAMYCIN
     Indication: Product used for unknown indication
     Dosage: DOSAGE TEXT: 1 DROP 4 TIMES A DAY INTO RIGHT EYE
     Route: 047
     Dates: start: 1999, end: 2016
  5. OMEPRAZOLE [Concomitant]
     Active Substance: OMEPRAZOLE
     Indication: Product used for unknown indication
     Dates: start: 1999, end: 2016
  6. AMBIEN [Concomitant]
     Active Substance: ZOLPIDEM TARTRATE
     Indication: Product used for unknown indication
     Route: 048
     Dates: start: 1999, end: 2018
  7. ADRIAMYCIN [Suspect]
     Active Substance: DOXORUBICIN HYDROCHLORIDE
     Indication: Triple negative breast cancer
     Route: 065
     Dates: start: 20140522, end: 20141002
  8. Bepreve/Pataday [Concomitant]
     Indication: Product used for unknown indication
     Dates: start: 1999, end: 2016
  9. QSYMIA [Concomitant]
     Active Substance: PHENTERMINE HYDROCHLORIDE\TOPIRAMATE
     Indication: Product used for unknown indication
     Dates: start: 1999, end: 2016
  10. MAXITROL [Concomitant]
     Active Substance: DEXAMETHASONE\NEOMYCIN SULFATE\POLYMYXIN B SULFATE
     Indication: Product used for unknown indication
     Dates: start: 1999, end: 2016
  11. DOSTINEX [Concomitant]
     Active Substance: CABERGOLINE
     Indication: Product used for unknown indication
     Dates: start: 1999, end: 2016
  12. MIRAPEX [Concomitant]
     Active Substance: PRAMIPEXOLE DIHYDROCHLORIDE
     Indication: Product used for unknown indication
     Dosage: DOSAGE TEXT: 0.5 MG
     Route: 048
     Dates: start: 1999, end: 2016
  13. XANAX [Concomitant]
     Active Substance: ALPRAZOLAM
     Indication: Product used for unknown indication
     Dosage: DOSAGE TEXT: 0.25 MG
     Route: 048
     Dates: start: 1999, end: 2016
  14. LEVAQUIN [Concomitant]
     Active Substance: LEVOFLOXACIN
     Indication: Product used for unknown indication
     Dosage: DOSAGE TEXT: FOR 14 DAYS
     Route: 048
     Dates: start: 1999, end: 2016
  15. NEURONTIN [Concomitant]
     Active Substance: GABAPENTIN
     Indication: Product used for unknown indication
     Dosage: TIME INTERVAL: 0.333 DAYS
     Route: 048
     Dates: start: 1999, end: 2016
  16. PERCOCET [Concomitant]
     Active Substance: ACETAMINOPHEN\OXYCODONE HYDROCHLORIDE
     Indication: Pain
     Dosage: DOSAGE TEXT: 5/325 ACETAMINOPHEN-OXYCODONE, 1 TAB(S) EVERY 6 HOURS
     Route: 048
     Dates: start: 1999, end: 2016
  17. PRAMIPEXOLE [Concomitant]
     Active Substance: PRAMIPEXOLE\PRAMIPEXOLE DIHYDROCHLORIDE
     Indication: Product used for unknown indication
     Dosage: DOSAGE TEXT: AT BEDTIME
     Route: 048
     Dates: start: 1999, end: 2016
  18. ROBAXIN [Concomitant]
     Active Substance: METHOCARBAMOL
     Indication: Product used for unknown indication
     Dosage: TIME INTERVAL: 0.333 DAYS: DOSAGE TEXT: 2 TAB(S)(L000 MILLIGRAM) THREE TIMES DAILY FOR 7 DAYS
     Route: 048
     Dates: start: 1999, end: 2016
  19. ZOMETA [Concomitant]
     Active Substance: ZOLEDRONIC ACID
     Indication: Product used for unknown indication
     Dates: start: 201402, end: 201408
  20. DOCETAXEL [Suspect]
     Active Substance: DOCETAXEL\DOCETAXEL ANHYDROUS
     Indication: Triple negative breast cancer
     Dosage: DOSAGE TEXT: 20MG/ML 4ML CONC
     Route: 065
     Dates: start: 20140522, end: 20141002
  21. DOCETAXEL [Suspect]
     Active Substance: DOCETAXEL\DOCETAXEL ANHYDROUS
     Indication: Triple negative breast cancer
     Dosage: DOSAGE TEXT: 20MG/ML 1ML CONC
     Route: 065
     Dates: start: 20140522, end: 20141002
  22. TAXOL [Suspect]
     Active Substance: PACLITAXEL
     Route: 065

REACTIONS (8)
  - Cataract [Not Recovered/Not Resolved]
  - Dacryostenosis acquired [Not Recovered/Not Resolved]
  - Visual acuity reduced [Unknown]
  - Lacrimation increased [Not Recovered/Not Resolved]
  - Eye pain [Unknown]
  - Eye discharge [Unknown]
  - Ocular hyperaemia [Unknown]
  - Foreign body sensation in eyes [Unknown]

NARRATIVE: CASE EVENT DATE: 20140901
